FAERS Safety Report 6382463-8 (Version None)
Quarter: 2009Q3

REPORT INFORMATION
  Report Type: 
  Country: None (occurrence: None)
  Receive Date: 20090924
  Receipt Date: 20090518
  Transmission Date: 20100115
  Serious: Yes (Other)
  Sender: FDA-Public Use
  Company Number: WAES 0905USA02277

PATIENT
  Age: 65 Year
  Sex: Male

DRUGS (3)
  1. VYTORIN [Suspect]
     Indication: BLOOD CHOLESTEROL INCREASED
     Dosage: 10 MG/40 MG/DAILY/PO
     Route: 048
     Dates: end: 20070501
  2. ............................. [Concomitant]
  3. GLUCOPHAGE [Concomitant]

REACTIONS (1)
  - PANCREATITIS [None]
